FAERS Safety Report 5892585-3 (Version None)
Quarter: 2008Q3

REPORT INFORMATION
  Report Type: 
  Country: None (occurrence: None)
  Receive Date: 20080923
  Receipt Date: 20080919
  Transmission Date: 20090109
  Serious: Yes (Hospitalization)
  Sender: FDA-Public Use
  Company Number: SE-ABBOTT-08P-150-0439930-00

PATIENT
  Age: 62 Year
  Sex: Female

DRUGS (48)
  1. ZEMPLAR [Suspect]
     Indication: ELECTROLYTE IMBALANCE
     Dosage: 5 MCG/ML
     Route: 050
  2. SODIUM BICARBONATE [Concomitant]
     Indication: ACID BASE BALANCE
     Route: 048
  3. OMEPRAZOLE [Concomitant]
     Indication: GASTROOESOPHAGEAL REFLUX DISEASE
     Route: 048
  4. LAKTULOS ORAL SOLUTION [Concomitant]
     Indication: CONSTIPATION
     Dosage: 10.05-20.1G; 670MG/ML; 15-30 ML
     Route: 048
  5. HUMALOG [Concomitant]
     Indication: DIABETES MELLITUS
     Dosage: 10+10+12 UNITS; 100E/ML (TO BE TAKEN WITH MEALS)
     Route: 058
  6. LANTUS OPTISET PEN [Concomitant]
     Indication: DIABETES MELLITUS
     Dosage: 10 UNITS AT EVE 100 IU/ML (LONG LASTING INSULIN)
     Route: 058
  7. TRIOBE [Concomitant]
     Indication: VITAMIN B COMPLEX DEFICIENCY
     Route: 048
  8. PARENTROVITE [Concomitant]
     Indication: VITAMIN SUPPLEMENTATION
     Route: 048
  9. CLOPIDOGREL [Concomitant]
     Indication: THROMBOSIS PROPHYLAXIS
     Route: 048
  10. ACETYLSALICYLIC ACID SRT [Concomitant]
     Indication: THROMBOSIS PROPHYLAXIS
     Route: 048
  11. DARBEPOETIN ALFA [Concomitant]
     Indication: DRUG USE FOR UNKNOWN INDICATION
     Dosage: GIVEN AT DIALYSIS
  12. DIGOXIN [Concomitant]
     Indication: ARRHYTHMIA
     Route: 048
  13. ISOSORBIDE MONONITRATE [Concomitant]
     Indication: ANGINA PECTORIS
     Route: 048
  14. ISOSORBIDE MONONITRATE [Concomitant]
     Indication: PROPHYLAXIS
  15. METOPROLOL SUCCINATE [Concomitant]
     Indication: PALPITATIONS
     Route: 048
  16. METOPROLOL SUCCINATE [Concomitant]
     Indication: CARDIAC DISORDER
  17. RAMIPRIL [Concomitant]
     Indication: DRUG USE FOR UNKNOWN INDICATION
     Route: 048
  18. ATORVASTATIN CALCIUM [Concomitant]
     Indication: DRUG USE FOR UNKNOWN INDICATION
     Route: 048
  19. PREDNISOLONE [Concomitant]
     Indication: ARTHRALGIA
     Route: 048
  20. DUROGESIC PATCH [Concomitant]
     Indication: PAIN
     Dosage: 50 MCG/ 72HOUR
     Route: 062
  21. GABAPENTIN [Concomitant]
     Indication: NEURALGIA
     Route: 048
  22. GABAPENTIN [Concomitant]
     Indication: PAIN IN EXTREMITY
  23. LEVOMEPROMAZINE [Concomitant]
     Indication: INSOMNIA
     Route: 048
  24. DIXYRAZINE [Concomitant]
     Indication: ANXIETY
     Dosage: 2 TABS THREE TIMES A DAY
     Route: 048
  25. OXAZEPAM [Concomitant]
     Indication: ANXIETY
     Route: 048
  26. ZOLPIDEM TARTRATE [Concomitant]
     Indication: INSOMNIA
     Route: 048
  27. CITALOPRAM HYDROBROMIDE [Concomitant]
     Indication: AFFECTIVE DISORDER
     Route: 048
  28. CITALOPRAM HYDROBROMIDE [Concomitant]
     Route: 048
  29. SEVELAMER [Concomitant]
     Indication: BLOOD PHOSPHORUS INCREASED
     Route: 048
  30. ANDAPSIN ORAL SUSP [Concomitant]
     Indication: STOMACH DISCOMFORT
     Dosage: 10ML; 1-2/D AS NEEDED; 200MG/ML
     Route: 048
  31. GAVISCON ORAL SUSP [Concomitant]
     Indication: DYSPEPSIA
     Route: 048
  32. GAVISCON ORAL SUSP [Concomitant]
     Indication: GASTROOESOPHAGEAL REFLUX DISEASE
  33. SODIUM PICOSULFATE [Concomitant]
     Indication: CONSTIPATION
     Dosage: 7.5MG/ML 5-10 DROPPS
     Route: 048
  34. NYSTATIN [Concomitant]
     Indication: ORAL FUNGAL INFECTION
     Dosage: 1 ML 4TIMES/DAY WHEN NEEDED; 100000 IU/L
     Route: 048
  35. NITROGLYCERIN RESORIB [Concomitant]
     Indication: ANGINA PECTORIS
     Route: 060
  36. METOPROLOL SUCCINATE [Concomitant]
     Dosage: 1/2-1 TAB AS NEEDED
     Route: 048
  37. DAKATACORT CREAM [Concomitant]
     Indication: DRUG USE FOR UNKNOWN INDICATION
     Dosage: DERMAL TOPICAL
     Route: 061
  38. BETNOVAT CUTANEOUS SOL. [Concomitant]
     Indication: DRUG USE FOR UNKNOWN INDICATION
     Dosage: 1 MG/ML; APPLIED 1-2/DAY ON SCALP WHEN NEEDED
  39. NABUMETONE [Concomitant]
     Indication: ARTHRALGIA
     Dosage: 1-2 TABS/DAY
     Route: 048
  40. NABUMETONE [Concomitant]
     Indication: MYALGIA
  41. LEVOCABASTINE HYDROCHLORIDE [Concomitant]
     Indication: EYE PAIN
     Dosage: 1 DROP IN EACH EYE
     Route: 047
  42. LEVOCABASTINE HYDROCHLORIDE [Concomitant]
     Indication: HYPERSENSITIVITY
  43. OXYCODONE HCL [Concomitant]
     Indication: PAIN
     Dosage: 1-2 TABS 1-3/DAY WHEN NEEDED
     Route: 048
  44. ALVEDON FORTE [Concomitant]
     Indication: PAIN
     Dosage: 1-4 TIMES A DAY
     Route: 048
  45. BUDESONIDE [Concomitant]
     Indication: NASAL CONGESTION
     Dosage: 32 MCG/DOS; 1 SPRAY IN EACH NASAL 1-2/DAY WHEN NEEDED
     Route: 045
  46. BUDESONIDE [Concomitant]
     Indication: HYPERSENSITIVITY
  47. ACETYLCYSTEIN EFFERVESCENT TABLET [Concomitant]
     Indication: MUCOUS MEMBRANE DISORDER
     Dosage: 1 TAB 2-3/DAY WHEN NEEDED
     Route: 048
  48. COCILLANA-ETYFIN ORAL SOLUTION [Concomitant]
     Indication: COUGH
     Dosage: 5-10 ML, 1-3/DAY WHEN NEEDED
     Route: 048

REACTIONS (14)
  - ANXIETY [None]
  - ARRHYTHMIA [None]
  - BLOOD GLUCOSE INCREASED [None]
  - BREATH SOUNDS ABNORMAL [None]
  - CARDIAC MURMUR [None]
  - CHEST PAIN [None]
  - COLD SWEAT [None]
  - DIARRHOEA [None]
  - FEELING ABNORMAL [None]
  - FLANK PAIN [None]
  - GENERAL PHYSICAL HEALTH DETERIORATION [None]
  - NAUSEA [None]
  - PALPITATIONS [None]
  - TROPONIN INCREASED [None]
